FAERS Safety Report 9217477 (Version 1)
Quarter: 2013Q2

REPORT INFORMATION
  Report Type: Spontaneous
  Country: US (occurrence: None)
  Receive Date: 20130405
  Receipt Date: 20130405
  Transmission Date: 20140414
  Serious: Yes (Hospitalization)
  Sender: FDA-Public Use
  Company Number: None

PATIENT
  Age: 61 Year
  Sex: Male
  Weight: 121 kg

DRUGS (1)
  1. CLONIDINE [Suspect]
     Dates: start: 20120613

REACTIONS (2)
  - Hypotension [None]
  - Acute coronary syndrome [None]
